FAERS Safety Report 7410194-1 (Version None)
Quarter: 2011Q2

REPORT INFORMATION
  Report Type: 
  Country: None (occurrence: None)
  Receive Date: 20110412
  Receipt Date: 20110406
  Transmission Date: 20111010
  Serious: Yes (Other)
  Sender: FDA-Public Use
  Company Number: JP-GENZYME-FLUD-1000901

PATIENT
  Age: 50 Year
  Sex: Male

DRUGS (5)
  1. FLUDARA [Suspect]
     Indication: CORD BLOOD TRANSPLANT THERAPY
     Dosage: 125 MG/M2, UNK
     Route: 065
  2. MELPHALAN [Suspect]
     Indication: CORD BLOOD TRANSPLANT THERAPY
     Dosage: 80 MG/M2, UNK
     Route: 065
  3. MELPHALAN [Suspect]
     Indication: ACUTE MYELOID LEUKAEMIA
  4. FLUDARA [Suspect]
     Indication: ACUTE MYELOID LEUKAEMIA
  5. TACROLIMUS [Concomitant]
     Indication: PROPHYLAXIS AGAINST GRAFT VERSUS HOST DISEASE
     Route: 065

REACTIONS (3)
  - TYPE III IMMUNE COMPLEX MEDIATED REACTION [None]
  - ACUTE GRAFT VERSUS HOST DISEASE [None]
  - CHRONIC GRAFT VERSUS HOST DISEASE [None]
